FAERS Safety Report 17509775 (Version 1)
Quarter: 2020Q1

REPORT INFORMATION
  Report Type: Spontaneous
  Country: JP (occurrence: JP)
  Receive Date: 20200306
  Receipt Date: 20200306
  Transmission Date: 20200409
  Serious: Yes (Other)
  Sender: FDA-Public Use
  Company Number: JP-PFIZER INC-2020098148

PATIENT
  Sex: Male

DRUGS (4)
  1. CELECOX [Concomitant]
     Active Substance: CELECOXIB
     Dosage: UNK
  2. FLIVAS [Concomitant]
     Active Substance: NAFTOPIDIL
     Dosage: UNK
  3. LYRICA [Suspect]
     Active Substance: PREGABALIN
     Dosage: 25 MG, UNK
     Route: 048
  4. LYRICA [Suspect]
     Active Substance: PREGABALIN
     Dosage: 50 MG, UNK
     Route: 048

REACTIONS (2)
  - Tendon rupture [Not Recovered/Not Resolved]
  - Dizziness [Unknown]

NARRATIVE: CASE EVENT DATE: 20200303
